FAERS Safety Report 21726873 (Version 1)
Quarter: 2022Q4

REPORT INFORMATION
  Report Type: Spontaneous
  Country: CN (occurrence: CN)
  Receive Date: 20221214
  Receipt Date: 20221214
  Transmission Date: 20230113
  Serious: Yes (Other)
  Sender: FDA-Public Use
  Company Number: CN-SA-2022SA499921

PATIENT
  Age: 55 Year
  Sex: Male

DRUGS (11)
  1. DUPIXENT [Suspect]
     Active Substance: DUPILUMAB
     Indication: Dermatitis atopic
     Dosage: 600 MG (STRENGTH: 300 MG/VIAL)
     Route: 058
     Dates: start: 20211228
  2. DUPIXENT [Suspect]
     Active Substance: DUPILUMAB
     Dosage: 300 MG, QOW
     Route: 058
  3. DUPIXENT [Suspect]
     Active Substance: DUPILUMAB
     Dosage: 5TH DOSE (STRENGTH: 300 MG/VIAL)
     Route: 058
     Dates: start: 20220301
  4. DUPIXENT [Suspect]
     Active Substance: DUPILUMAB
     Dosage: 6TH DOSE (STRENGTH: 300 MG/VIAL)
     Route: 058
     Dates: start: 20220315
  5. DUPIXENT [Suspect]
     Active Substance: DUPILUMAB
     Dosage: 300 MG (STRENGTH: 300 MG/VIAL)
     Route: 058
     Dates: start: 20220329, end: 20220406
  6. RUPATADINE FUMARATE [Concomitant]
     Active Substance: RUPATADINE FUMARATE
     Indication: Dermatitis atopic
     Dosage: UNK
     Dates: start: 202112
  7. KETOTIFEN FUMARATE [Concomitant]
     Active Substance: KETOTIFEN FUMARATE
     Indication: Dermatitis atopic
     Dosage: UNK
     Route: 048
     Dates: start: 202112
  8. HALOMETASONE [Concomitant]
     Active Substance: HALOMETASONE
     Indication: Dermatitis atopic
     Dosage: UNK
     Route: 061
     Dates: start: 202112
  9. UREA [Concomitant]
     Active Substance: UREA
     Indication: Dermatitis atopic
     Dosage: UNK
     Route: 061
     Dates: start: 202112
  10. CAMPHOR [Concomitant]
     Active Substance: CAMPHOR
     Indication: Dermatitis atopic
     Dosage: UNK
     Route: 061
     Dates: start: 202112
  11. MOMETASONE [Concomitant]
     Active Substance: MOMETASONE
     Indication: Dermatitis atopic
     Dosage: UNK
     Route: 061
     Dates: start: 2022, end: 2022

REACTIONS (4)
  - Polyarthritis [Recovered/Resolved]
  - Arthralgia [Recovered/Resolved]
  - Joint swelling [Recovered/Resolved]
  - Musculoskeletal stiffness [Recovered/Resolved]

NARRATIVE: CASE EVENT DATE: 20220307
